FAERS Safety Report 8499181-2 (Version None)
Quarter: 2012Q2

REPORT INFORMATION
  Report Type: 
  Country: None (occurrence: None)
  Receive Date: 20120405
  Receipt Date: 20100813
  Transmission Date: 20120825
  Serious: Yes (Other)
  Sender: FDA-Public Use
  Company Number: PHHY2010US43858

PATIENT
  Sex: Female

DRUGS (10)
  1. EXELON [Concomitant]
  2. LEVOTHYROXINE SODIUM [Concomitant]
  3. CARDEM (CELIPROLOL HYDROCHLORIDE) [Concomitant]
  4. PREDNISOLONE [Concomitant]
  5. ASPIRIN [Concomitant]
  6. KLONOPIN [Concomitant]
  7. FOLIC ACID [Concomitant]
  8. MELOXICAM [Concomitant]
  9. RECLAST [Suspect]
     Dosage: INTRAVENOUS ; INTRAVENOUS
     Route: 042
  10. FLECTOR [Concomitant]

REACTIONS (4)
  - ORAL TORUS [None]
  - OSTEONECROSIS OF JAW [None]
  - BONE DISORDER [None]
  - MOUTH ULCERATION [None]
